FAERS Safety Report 18954973 (Version 1)
Quarter: 2021Q1

REPORT INFORMATION
  Report Type: Report from Study
  Country: US (occurrence: US)
  Receive Date: 20210302
  Receipt Date: 20210302
  Transmission Date: 20210420
  Serious: Yes (Death, Other)
  Sender: FDA-Public Use
  Company Number: US-SUN PHARMACEUTICAL INDUSTRIES LTD-2021R1-282817

PATIENT
  Age: 55 Year
  Sex: Female

DRUGS (1)
  1. ACETAMINOPHEN. [Suspect]
     Active Substance: ACETAMINOPHEN
     Indication: PRODUCT USED FOR UNKNOWN INDICATION
     Dosage: UNK
     Route: 065

REACTIONS (8)
  - Hepatotoxicity [Unknown]
  - Thrombocytopenia [Unknown]
  - Toxicity to various agents [Fatal]
  - Anion gap [Unknown]
  - Hypotension [Unknown]
  - Hypoglycaemia [Unknown]
  - Coagulopathy [Unknown]
  - Acute kidney injury [Unknown]
